FAERS Safety Report 23956813 (Version 2)
Quarter: 2024Q3

REPORT INFORMATION
  Report Type: Report from Study
  Country: AU (occurrence: AU)
  Receive Date: 20240610
  Receipt Date: 20240801
  Transmission Date: 20241016
  Serious: Yes (Other)
  Sender: TAKEDA
  Company Number: AU-TAKEDA-2024TUS055275

PATIENT
  Age: 83 Year
  Sex: Female

DRUGS (1)
  1. VEDOLIZUMAB [Suspect]
     Active Substance: VEDOLIZUMAB
     Indication: Colitis ulcerative
     Dosage: 300 MILLIGRAM
     Route: 042
     Dates: start: 20240418

REACTIONS (4)
  - Vertigo [Not Recovered/Not Resolved]
  - Diabetes mellitus [Unknown]
  - Ear pain [Not Recovered/Not Resolved]
  - Blister infected [Not Recovered/Not Resolved]

NARRATIVE: CASE EVENT DATE: 20240526
